FAERS Safety Report 5701847-1 (Version None)
Quarter: 2008Q2

REPORT INFORMATION
  Report Type: 
  Country: None (occurrence: None)
  Receive Date: 20080408
  Receipt Date: 20080402
  Transmission Date: 20081010
  Serious: Yes (Death, Life-Threatening, Hospitalization)
  Sender: FDA-Public Use
  Company Number: 144-C5013-07110759

PATIENT
  Age: 79 Year
  Sex: Male
  Weight: 62.5 kg

DRUGS (4)
  1. CC-5013\PLACEBO (LENALIDOMIDE) (CAPSULES) [Suspect]
     Indication: MULTIPLE MYELOMA
     Dosage: 7.5 MG, DAILY, D1-21, EVERY 28 DAYS, ORAL
     Route: 048
     Dates: start: 20071011, end: 20071111
  2. MELPHALAN (MELPHALAN) [Suspect]
     Indication: MULTIPLE MYELOMA
     Dosage: 12 MG, DAILY, D1-4 EVERY 28 DAYS, ORAL
     Route: 048
     Dates: start: 20071011, end: 20071111
  3. PREDNISONE TAB [Suspect]
     Indication: MULTIPLE MYELOMA
     Dosage: 130 MG, DAILY, D1-4 EVERY 28 DAYS, ORAL
     Route: 048
     Dates: start: 20071011, end: 20071111
  4. NOREPINEPHRINE BITARTRATE [Suspect]
     Indication: DRUG USE FOR UNKNOWN INDICATION

REACTIONS (8)
  - INFECTION [None]
  - MULTI-ORGAN FAILURE [None]
  - NEUTROPENIA [None]
  - PNEUMONIA [None]
  - PNEUMONIA PNEUMOCOCCAL [None]
  - PNEUMONIA STREPTOCOCCAL [None]
  - RESPIRATORY FAILURE [None]
  - SEPTIC SHOCK [None]
